FAERS Safety Report 5764277-2 (Version None)
Quarter: 2008Q2

REPORT INFORMATION
  Report Type: 
  Country: None (occurrence: None)
  Receive Date: 20080604
  Receipt Date: 20080521
  Transmission Date: 20081010
  Serious: Yes (Death, Hospitalization)
  Sender: FDA-Public Use
  Company Number: 2008AL005653

PATIENT
  Age: 82 Year
  Sex: Male

DRUGS (1)
  1. DIGOXIN [Suspect]
     Indication: ATRIAL FIBRILLATION
     Dosage: 0.25MG DAILY PO
     Route: 048
     Dates: start: 20070801, end: 20070901

REACTIONS (8)
  - ASTHENIA [None]
  - CARDIOACTIVE DRUG LEVEL ABOVE THERAPEUTIC [None]
  - COUGH [None]
  - DIZZINESS [None]
  - NAUSEA [None]
  - ORAL INTAKE REDUCED [None]
  - THERAPEUTIC AGENT TOXICITY [None]
  - WHEEZING [None]
